FAERS Safety Report 5680478-6 (Version None)
Quarter: 2008Q1

REPORT INFORMATION
  Report Type: 
  Country: None (occurrence: None)
  Receive Date: 20080326
  Receipt Date: 20080319
  Transmission Date: 20080703
  Serious: Yes (Hospitalization)
  Sender: FDA-Public Use
  Company Number: B0513926A

PATIENT
  Age: 44 Year
  Sex: Female

DRUGS (1)
  1. AUGMENTIN '125' [Suspect]
     Indication: PNEUMONIA
     Dosage: 1TAB TWICE PER DAY
     Route: 048
     Dates: start: 20080104, end: 20080109

REACTIONS (2)
  - HYPERSENSITIVITY [None]
  - TOXIC SKIN ERUPTION [None]
